FAERS Safety Report 5759499-0 (Version None)
Quarter: 2008Q2

REPORT INFORMATION
  Report Type: 
  Country: None (occurrence: None)
  Receive Date: 20080605
  Receipt Date: 20080521
  Transmission Date: 20081010
  Serious: Yes (Hospitalization, Other)
  Sender: FDA-Public Use
  Company Number: PL-BAYER-200819001GPV

PATIENT
  Sex: Female

DRUGS (2)
  1. MIRENA [Suspect]
     Indication: DRUG USE FOR UNKNOWN INDICATION
     Route: 015
     Dates: start: 20071220, end: 20071225
  2. METRONIDAZOLE HCL [Concomitant]
     Indication: PROPHYLAXIS
     Route: 065
     Dates: start: 20071220

REACTIONS (22)
  - ABDOMINAL ADHESIONS [None]
  - ABDOMINAL PAIN [None]
  - ANAEMIA [None]
  - ANURIA [None]
  - CARDIAC FUNCTION DISTURBANCE POSTOPERATIVE [None]
  - ELECTROLYTE IMBALANCE [None]
  - FATIGUE [None]
  - HYPOTENSION [None]
  - MALAISE [None]
  - NAUSEA [None]
  - OEDEMA [None]
  - OEDEMA PERIPHERAL [None]
  - PELVIC FLUID COLLECTION [None]
  - POLYURIA [None]
  - POSTOPERATIVE WOUND INFECTION [None]
  - PYREXIA [None]
  - SEPTIC SHOCK [None]
  - STREPTOCOCCAL INFECTION [None]
  - SYNCOPE [None]
  - TACHYCARDIA [None]
  - VAGINITIS BACTERIAL [None]
  - VOMITING [None]
